FAERS Safety Report 24974123 (Version 1)
Quarter: 2025Q1

REPORT INFORMATION
  Report Type: Spontaneous
  Country: US (occurrence: US)
  Receive Date: 20250217
  Receipt Date: 20250217
  Transmission Date: 20250408
  Serious: No
  Sender: ALKEM
  Company Number: US-ALKEM LABORATORIES LIMITED-US-ALKEM-2024-13930

PATIENT
  Age: 26 Year
  Sex: Male
  Weight: 70.295 kg

DRUGS (1)
  1. FINASTERIDE [Suspect]
     Active Substance: FINASTERIDE
     Indication: Androgenetic alopecia
     Dosage: 1 MILLIGRAM, QD
     Route: 048
     Dates: start: 202307, end: 202404

REACTIONS (2)
  - Sexual dysfunction [Recovered/Resolved]
  - Orgasm abnormal [Recovered/Resolved]

NARRATIVE: CASE EVENT DATE: 20240310
